FAERS Safety Report 8379765-2 (Version None)
Quarter: 2012Q2

REPORT INFORMATION
  Report Type: 
  Country: None (occurrence: None)
  Receive Date: 20120523
  Receipt Date: 20110310
  Transmission Date: 20120825
  Serious: Yes (Other)
  Sender: FDA-Public Use
  Company Number: US-BAYER-2011-018661

PATIENT
  Sex: Female

DRUGS (1)
  1. MIRENA [Suspect]
     Indication: CONTRACEPTION
     Dosage: 20 ?G/D, CONT
     Route: 015
     Dates: start: 20090601, end: 20101230

REACTIONS (7)
  - PRESYNCOPE [None]
  - CHILLS [None]
  - DEVICE BREAKAGE [None]
  - PELVIC PAIN [None]
  - ACNE [None]
  - PROCEDURAL PAIN [None]
  - HYPERHIDROSIS [None]
